FAERS Safety Report 23129639 (Version 1)
Quarter: 2023Q4

REPORT INFORMATION
  Report Type: Spontaneous
  Country: RO (occurrence: RO)
  Receive Date: 20231031
  Receipt Date: 20231031
  Transmission Date: 20240109
  Serious: Yes (Other)
  Sender: FDA-Public Use
  Company Number: RO-BIOVITRUM-2023-RO-017203

PATIENT
  Age: 53 Year
  Sex: Female

DRUGS (2)
  1. DOPTELET [Suspect]
     Active Substance: AVATROMBOPAG MALEATE
     Indication: Product used for unknown indication
     Dosage: 40 MG ON MONDAY, WEDNESDAY AND FRIDAY.
  2. DOPTELET [Suspect]
     Active Substance: AVATROMBOPAG MALEATE
     Dosage: 20 MG DAILY IN THE REST OF DAYS

REACTIONS (1)
  - Platelet count decreased [Unknown]
